FAERS Safety Report 4887548-0 (Version None)
Quarter: 2006Q1

REPORT INFORMATION
  Report Type: 
  Country: None (occurrence: None)
  Receive Date: 20060118
  Receipt Date: 20060106
  Transmission Date: 20060701
  Serious: Yes (Hospitalization, Other)
  Sender: FDA-Public Use
  Company Number: 219962

PATIENT
  Age: 59 Year
  Sex: Female
  Weight: 65 kg

DRUGS (2)
  1. RITUXAN [Suspect]
     Indication: LYMPHOMA
     Dosage: 375 MG/M2, INTRAVENOUS
     Route: 042
     Dates: start: 20050729, end: 20050819
  2. NEUPOGEN [Suspect]
     Dates: start: 20050101

REACTIONS (3)
  - CELLULITIS [None]
  - LYMPHOMA [None]
  - NEUTROPENIA [None]
